FAERS Safety Report 6331345-6 (Version None)
Quarter: 2009Q3

REPORT INFORMATION
  Report Type: 
  Country: None (occurrence: None)
  Receive Date: 20090827
  Receipt Date: 20090824
  Transmission Date: 20100115
  Serious: Yes (Other)
  Sender: FDA-Public Use
  Company Number: FR-TEVA-207017ISR

PATIENT
  Age: 35 Year
  Sex: Male

DRUGS (1)
  1. PREDNISOLONE [Suspect]
     Route: 048

REACTIONS (1)
  - PARALYSIS [None]
